FAERS Safety Report 7950465-3 (Version None)
Quarter: 2011Q4

REPORT INFORMATION
  Report Type: 
  Country: None (occurrence: None)
  Receive Date: 20111130
  Receipt Date: 20111128
  Transmission Date: 20120403
  Serious: Yes (Hospitalization)
  Sender: FDA-Public Use
  Company Number: FR-BAYER-2011-114802

PATIENT
  Age: 67 Year
  Sex: Male

DRUGS (5)
  1. AMITRIPTYLINE HCL [Suspect]
     Indication: PAIN
     Dosage: 50 DF, QD
     Dates: start: 20110601, end: 20110902
  2. FORLAX [Suspect]
     Indication: CONSTIPATION
     Dosage: 2 DF, QD
     Dates: start: 20110601, end: 20110902
  3. LANTUS [Suspect]
     Indication: TYPE 2 DIABETES MELLITUS
     Dosage: UNK
     Dates: start: 20110301
  4. ACARBOSE [Suspect]
     Indication: TYPE 2 DIABETES MELLITUS
     Dosage: UNK
     Dates: start: 20110301
  5. GLUCOPHAGE [Suspect]
     Indication: TYPE 2 DIABETES MELLITUS
     Dosage: UNK
     Dates: start: 20110301

REACTIONS (2)
  - NEUTROPENIA [None]
  - HYPONATRAEMIA [None]
